FAERS Safety Report 10411038 (Version 3)
Quarter: 2014Q3

REPORT INFORMATION
  Report Type: Report from Study
  Country: FR (occurrence: FR)
  Receive Date: 20140826
  Receipt Date: 20140915
  Transmission Date: 20150326
  Serious: Yes (Hospitalization)
  Sender: FDA-Public Use
  Company Number: FR-EXELIXIS-XL18414004650

PATIENT
  Age: 65 Year
  Sex: Male
  Weight: 58 kg

DRUGS (11)
  1. BICARBONATE [Concomitant]
     Active Substance: BICARBONATE ION
  2. VOGALENE [Concomitant]
     Active Substance: METOPIMAZINE
  3. PARIET [Concomitant]
     Active Substance: RABEPRAZOLE SODIUM
  4. LOPERAMIDE [Concomitant]
     Active Substance: LOPERAMIDE
  5. XL184 [Suspect]
     Active Substance: CABOZANTINIB
     Indication: RENAL CELL CARCINOMA
     Dosage: 60 MG, QD
     Route: 048
     Dates: start: 20140213, end: 2014
  6. FRAGMINE [Concomitant]
     Active Substance: DALTEPARIN SODIUM
  7. TRAMADOL [Concomitant]
     Active Substance: TRAMADOL
  8. XL184 [Suspect]
     Active Substance: CABOZANTINIB
     Dosage: 40 MG, QD
     Route: 048
     Dates: start: 2014, end: 20140828
  9. BISOPROLOL [Concomitant]
     Active Substance: BISOPROLOL
  10. LEVOTHYROX [Concomitant]
     Active Substance: LEVOTHYROXINE
  11. ULCAR [Concomitant]
     Active Substance: SUCRALFATE

REACTIONS (1)
  - Anaemia [Recovered/Resolved]

NARRATIVE: CASE EVENT DATE: 20140813
